FAERS Safety Report 15144890 (Version 1)
Quarter: 2018Q3

REPORT INFORMATION
  Report Type: Spontaneous
  Country: SK (occurrence: SK)
  Receive Date: 20180713
  Receipt Date: 20180713
  Transmission Date: 20181010
  Serious: Yes (Hospitalization)
  Sender: FDA-Public Use
  Company Number: SK-PFIZER INC-2018282451

PATIENT
  Age: 90 Year
  Sex: Female
  Weight: 62 kg

DRUGS (6)
  1. BETALOC ZOK [Concomitant]
     Active Substance: METOPROLOL SUCCINATE
     Indication: MYOCARDIAL ISCHAEMIA
     Route: 048
  2. ASPIRIN. [Concomitant]
     Active Substance: ASPIRIN
     Dosage: 100 MG, 1X/DAY
     Route: 048
     Dates: end: 20180509
  3. IBUPROFEN. [Suspect]
     Active Substance: IBUPROFEN
     Indication: PAIN IN EXTREMITY
     Route: 048
  4. EBRANTIL [Concomitant]
     Active Substance: URAPIDIL
     Indication: HYPERTENSIVE HEART DISEASE
     Route: 048
  5. FURON [Suspect]
     Active Substance: FUROSEMIDE
     Indication: CARDIAC FAILURE
     Route: 048
  6. CO PRENESSA [Suspect]
     Active Substance: INDAPAMIDE\PERINDOPRIL ERBUMINE
     Indication: HYPERTENSIVE HEART DISEASE
     Dosage: (INDAPAMIDE 2.5G) / (PERINDOPRIL TERT?BUTYLAMINE 2.5 MG) 1 DF
     Route: 048

REACTIONS (2)
  - Hypernatriuria [Recovered/Resolved]
  - Hyponatraemia [Recovered/Resolved]

NARRATIVE: CASE EVENT DATE: 20180509
